FAERS Safety Report 6336504-4 (Version None)
Quarter: 2009Q3

REPORT INFORMATION
  Report Type: 
  Country: None (occurrence: None)
  Receive Date: 20090901
  Receipt Date: 20090819
  Transmission Date: 20100115
  Serious: Yes (Death, Hospitalization, Other)
  Sender: FDA-Public Use
  Company Number: US-AVENTIS-200812635US

PATIENT
  Sex: Female
  Weight: 61 kg

DRUGS (28)
  1. LOVENOX [Suspect]
     Route: 058
     Dates: start: 20071018
  2. LOVENOX [Suspect]
     Route: 058
     Dates: start: 20071021
  3. LASIX [Suspect]
     Dosage: DOSE: UNK
     Dates: end: 20071020
  4. LASIX [Suspect]
     Dosage: DOSE: 10MG/ML
     Route: 051
  5. COUMADIN [Suspect]
     Dosage: DOSE: UNK
  6. COUMADIN [Suspect]
     Route: 048
     Dates: start: 20071024
  7. ASPIRIN [Suspect]
     Route: 048
  8. METOPROLOL [Concomitant]
     Dosage: DOSE: UNK
  9. LOVAZA [Concomitant]
     Dosage: DOSE: UNK
  10. EMPIRIN [Concomitant]
     Dosage: DOSE: UNK
  11. ALBUTEROL [Concomitant]
     Dosage: DOSE: UNK
  12. ALBUTEROL [Concomitant]
     Dosage: DOSE: 2, 5ML
     Route: 055
  13. CLINDAMYCIN [Concomitant]
     Dosage: DOSE: UNK
     Route: 042
     Dates: start: 20071019, end: 20071024
  14. PROTONIX [Concomitant]
  15. POTASSIUM CHLORIDE [Concomitant]
     Dosage: DOSE: UNK
  16. AVELOX [Concomitant]
     Dosage: DOSE: UNK
     Route: 042
     Dates: start: 20071019, end: 20071019
  17. TPN [Concomitant]
     Dates: start: 20071001, end: 20071001
  18. INSULIN HUMAN R [Concomitant]
     Dosage: DOSE: SLIDING SCALE
     Dates: start: 20071022
  19. LOPRESSOR [Concomitant]
     Dosage: DOSE: 25 HOLD FOR ,SBP 90
     Dates: start: 20071023
  20. LEVOPHED [Concomitant]
     Dosage: DOSE: UNK
  21. MIRALAX [Concomitant]
     Indication: CONSTIPATION
     Dosage: DOSE: 17 G
  22. ZOCOR [Concomitant]
  23. LISINOPRIL [Concomitant]
     Route: 048
     Dates: start: 20071024
  24. LORAZEPAM [Concomitant]
     Indication: AGITATION
     Dosage: DOSE: 2MG/ML
  25. FENTANYL [Concomitant]
     Dosage: DOSE: 100MCG/2ML
  26. NITRO-BID [Concomitant]
     Dosage: DOSE: UNK
     Route: 061
     Dates: start: 20071018, end: 20071018
  27. DIGOXIN [Concomitant]
     Dosage: DOSE: UNK
  28. DILTIAZEM [Concomitant]
     Dosage: DOSE: UNK

REACTIONS (10)
  - ATELECTASIS [None]
  - ATRIAL FIBRILLATION [None]
  - BLOOD CREATININE INCREASED [None]
  - BLOOD UREA INCREASED [None]
  - DEATH [None]
  - INTERNATIONAL NORMALISED RATIO INCREASED [None]
  - PNEUMONIA ASPIRATION [None]
  - RENAL FAILURE ACUTE [None]
  - RESPIRATORY FAILURE [None]
  - SKIN ULCER [None]
